FAERS Safety Report 25647886 (Version 2)
Quarter: 2025Q3

REPORT INFORMATION
  Report Type: Report from Study
  Country: EG (occurrence: EG)
  Receive Date: 20250806
  Receipt Date: 20250924
  Transmission Date: 20251020
  Serious: Yes (Death, Hospitalization)
  Sender: ROCHE
  Company Number: EG-ROCHE-10000259423

PATIENT
  Age: 79 Year
  Sex: Female
  Weight: 80 kg

DRUGS (7)
  1. POLIVY [Suspect]
     Active Substance: POLATUZUMAB VEDOTIN-PIIQ
     Indication: Lymphoma
     Route: 042
     Dates: start: 20250318, end: 20250821
  2. MABTHERA [Suspect]
     Active Substance: RITUXIMAB
     Indication: Lymphoma
     Route: 042
  3. GLUCOPHAGE [Concomitant]
     Active Substance: METFORMIN HYDROCHLORIDE
     Indication: Diabetes mellitus
     Dosage: TAKE 1 TABLET IN THE MORNING AND 1 TABLET AFTER LUNCH.
     Route: 048
  4. BISOPROLOL FUMARATE [Concomitant]
     Active Substance: BISOPROLOL FUMARATE
     Indication: Hypertension
     Dosage: TAKE ONE TABLET WHEN NEEDED, AFTER BREAKFAST.
     Route: 048
  5. ELIQUIS [Concomitant]
     Active Substance: APIXABAN
     Indication: Atrial flutter
     Route: 048
  6. NPLATE [Concomitant]
     Active Substance: ROMIPLOSTIM
     Indication: Thrombocytopenia
     Route: 042
     Dates: start: 20250402
  7. TARGET [ATENOLOL;CHLORTALIDONE] [Concomitant]
     Indication: Hypertension
     Dosage: TAKE ONE TABLET WHEN NEEDED.
     Route: 048

REACTIONS (6)
  - Anaemia [Recovered/Resolved]
  - Haemoglobin decreased [Unknown]
  - Platelet count decreased [Unknown]
  - Catheter site abscess [Recovered/Resolved]
  - Drug ineffective [Unknown]
  - Infection [Fatal]

NARRATIVE: CASE EVENT DATE: 20250401
